FAERS Safety Report 11697889 (Version 1)
Quarter: 2015Q4

REPORT INFORMATION
  Report Type: Spontaneous
  Country: GB (occurrence: GB)
  Receive Date: 20151104
  Receipt Date: 20151104
  Transmission Date: 20160304
  Serious: Yes (Other)
  Sender: FDA-Public Use
  Company Number: GB-GLAXOSMITHKLINE-GB2015157107

PATIENT
  Age: 84 Year
  Sex: Male
  Weight: 57 kg

DRUGS (14)
  1. DERMACOOL [Concomitant]
     Dosage: APPLY AS NEEDED
     Dates: start: 20150727, end: 20150824
  2. DIPYRIDAMOLE. [Concomitant]
     Active Substance: DIPYRIDAMOLE
     Dosage: 1 DF, BID
     Dates: start: 20141124
  3. SODIUM ALGINATE [Concomitant]
     Active Substance: SODIUM ALGINATE
     Dosage: 5ML - 10ML 4 TIMES/DAY
     Dates: start: 20150713
  4. ANORO ELLIPTA [Suspect]
     Active Substance: UMECLIDINIUM BROMIDE\VILANTEROL TRIFENATATE
     Indication: PRODUCT USED FOR UNKNOWN INDICATION
     Dates: start: 20150812
  5. ASPIRIN. [Concomitant]
     Active Substance: ASPIRIN
     Dosage: 1 DF, QD
     Dates: start: 20110301
  6. DOCUSATE SODIUM. [Concomitant]
     Active Substance: DOCUSATE SODIUM
     Indication: CONSTIPATION
     Dosage: TO TAKE 1-2 AT NIGHT
     Dates: start: 20150121
  7. SALBUTAMOL [Concomitant]
     Active Substance: ALBUTEROL
     Dosage: 1-2 PUFFS 2-4HRLY AS REQUIRED VIA AEROCHAMBER
     Route: 055
     Dates: start: 20140811
  8. SIMVADOR [Concomitant]
     Active Substance: SIMVASTATIN
     Dosage: AT NIGHT
     Dates: start: 20061109
  9. CHLORPHENAMINE [Concomitant]
     Active Substance: CHLORPHENIRAMINE MALEATE
     Dosage: 1 DF, UNK
     Dates: start: 20150727, end: 20150803
  10. CORACTEN [Concomitant]
     Dosage: 1 DF, QD
     Dates: start: 20031121
  11. MOMETASONE [Concomitant]
     Active Substance: MOMETASONE
     Dosage: 2 DF, QD
     Dates: start: 20150727, end: 20150728
  12. DESUNIN [Concomitant]
     Active Substance: CHOLECALCIFEROL
     Dosage: USE AS DIRECTED
     Dates: start: 20150508
  13. MICONAZOLE. [Concomitant]
     Active Substance: MICONAZOLE
     Dosage: APPLY TWICE DAILY AS REQUIRED
     Dates: start: 20150921, end: 20150928
  14. NYSTAN [Concomitant]
     Active Substance: NYSTATIN
     Dosage: 1 ML, QID
     Dates: start: 20150929, end: 20151006

REACTIONS (1)
  - Pruritus generalised [Unknown]

NARRATIVE: CASE EVENT DATE: 20150820
